FAERS Safety Report 7688628 (Version 2)
Quarter: 2013Q1

REPORT INFORMATION
  Report Type: Spontaneous
  Country: US (occurrence: US)
  Receive Date: 20101201
  Receipt Date: 20130211
  Transmission Date: 20140127
  Serious: Yes (Other)
  Sender: FDA-Public Use
  Company Number: US-ROCHE-722536

PATIENT
  Age: 15 Year
  Sex: Male
  Weight: 108.9 kg

DRUGS (1)
  1. ACCUTANE [Suspect]
     Indication: ACNE
     Dosage: DAILY
     Route: 065
     Dates: start: 19980317, end: 199808

REACTIONS (7)
  - Crohn^s disease [Unknown]
  - Gastrointestinal injury [Unknown]
  - Inflammatory bowel disease [Unknown]
  - Large intestine polyp [Unknown]
  - Rectal fissure [Unknown]
  - Blood cholesterol increased [Unknown]
  - Obesity [Unknown]
